FAERS Safety Report 5278314-5 (Version None)
Quarter: 2007Q1

REPORT INFORMATION
  Report Type: 
  Country: None (occurrence: None)
  Receive Date: 20070322
  Receipt Date: 20070309
  Transmission Date: 20070707
  Serious: Yes (Life-Threatening, Other)
  Sender: FDA-Public Use
  Company Number: 2007RR-06304

PATIENT
  Age: 51 Year
  Sex: Male

DRUGS (6)
  1. DILTIAZEM [Suspect]
     Dosage: 1.8-3.6 G
  2. PARECETAMOL(ACETAMINOPHEN/PARACETAMOL) UNKNOWN [Suspect]
  3. ASPIRIN [Suspect]
  4. ISOSORBIDE DINITRATE [Suspect]
  5. ALCOHOL(ALCOHOL) [Suspect]
  6. DOBUTAMINE [Concomitant]

REACTIONS (16)
  - BLOOD PRESSURE IMMEASURABLE [None]
  - CARDIAC ARREST [None]
  - CARDIAC DISORDER [None]
  - CONTINUOUS HAEMODIAFILTRATION [None]
  - DRUG TOXICITY [None]
  - GRAND MAL CONVULSION [None]
  - HYPERGLYCAEMIA [None]
  - HYPOTENSION [None]
  - LOSS OF CONSCIOUSNESS [None]
  - METABOLIC ACIDOSIS [None]
  - MULTIPLE DRUG OVERDOSE [None]
  - NODAL ARRHYTHMIA [None]
  - PULMONARY OEDEMA [None]
  - RENAL FAILURE ACUTE [None]
  - SINUS BRADYCARDIA [None]
  - TREATMENT NONCOMPLIANCE [None]
